FAERS Safety Report 13605936 (Version 4)
Quarter: 2019Q1

REPORT INFORMATION
  Report Type: Spontaneous
  Country: US (occurrence: US)
  Receive Date: 20170602
  Receipt Date: 20190327
  Transmission Date: 20190417
  Serious: No
  Sender: FDA-Public Use
  Company Number: US-PFIZER INC-2017239950

PATIENT
  Age: 44 Year
  Sex: Female

DRUGS (1)
  1. IBRANCE [Suspect]
     Active Substance: PALBOCICLIB
     Indication: BREAST CANCER FEMALE
     Dosage: 125 MG, CYCLIC (DAILY FOR 21 DAYS THEN OFF 7 DAYS AND REPEAT, 1-21 OF A 28 DAY CYCLE)
     Route: 048
     Dates: start: 201605

REACTIONS (5)
  - Product dose omission [Unknown]
  - Abscess oral [Unknown]
  - Arthralgia [Unknown]
  - Alopecia [Unknown]
  - Joint swelling [Unknown]
